FAERS Safety Report 14001102 (Version 1)
Quarter: 2017Q3

REPORT INFORMATION
  Report Type: Spontaneous
  Country: None (occurrence: AU)
  Receive Date: 20170922
  Receipt Date: 20170922
  Transmission Date: 20171128
  Serious: Yes (Hospitalization)
  Sender: FDA-Public Use
  Company Number: AU-MERZ NORTH AMERICA, INC.-17MRZ-00274

PATIENT
  Age: 92 Year
  Sex: Female

DRUGS (1)
  1. XEOMIN [Suspect]
     Active Substance: INCOBOTULINUMTOXINA
     Indication: OESOPHAGEAL SPASM
     Dosage: (1 IN 1 TOTAL)

REACTIONS (4)
  - Vascular pseudoaneurysm [Recovered/Resolved]
  - Off label use [Unknown]
  - Pulmonary embolism [Recovered/Resolved]
  - Deep vein thrombosis [Recovered/Resolved]
